FAERS Safety Report 7483768-X (Version None)
Quarter: 2011Q2

REPORT INFORMATION
  Report Type: 
  Country: None (occurrence: None)
  Receive Date: 20110517
  Receipt Date: 20110506
  Transmission Date: 20111010
  Serious: Yes (Hospitalization)
  Sender: FDA-Public Use
  Company Number: PHHY2011JP14274

PATIENT
  Sex: Male
  Weight: 69 kg

DRUGS (5)
  1. MESADORIN S [Suspect]
     Indication: PROPHYLAXIS AGAINST GASTROINTESTINAL ULCER
     Dosage: 1.34 MG, DAILY
     Route: 048
     Dates: start: 20110128, end: 20110212
  2. VOLTAREN [Suspect]
     Indication: GOUT
     Dosage: 37.5 MG, BID
     Route: 048
     Dates: start: 20110128, end: 20110212
  3. ZOLPIDEM [Concomitant]
     Indication: INSOMNIA
     Dosage: UNK
     Route: 048
  4. VOLTAREN [Suspect]
     Indication: GOUT
     Dosage: UNK
     Route: 054
     Dates: start: 20110204
  5. ROHYPNOL [Concomitant]
     Indication: INSOMNIA
     Dosage: UNK
     Route: 048

REACTIONS (7)
  - LYMPHOCYTE COUNT DECREASED [None]
  - PAIN [None]
  - LUNG DISORDER [None]
  - INTERSTITIAL LUNG DISEASE [None]
  - C-REACTIVE PROTEIN INCREASED [None]
  - PYREXIA [None]
  - RESPIRATORY DISORDER [None]
